FAERS Safety Report 22024495 (Version 1)
Quarter: 2023Q1

REPORT INFORMATION
  Report Type: Spontaneous
  Country: US (occurrence: None)
  Receive Date: 20230223
  Receipt Date: 20230223
  Transmission Date: 20230418
  Serious: No
  Sender: FDA-Public Use
  Company Number: US-ROCHE-3053270

PATIENT
  Age: 21 Year
  Sex: Male
  Weight: 54.480 kg

DRUGS (5)
  1. XOLAIR [Suspect]
     Active Substance: OMALIZUMAB
     Indication: Urticaria cholinergic
     Dosage: TWO INJECTIONS OF 150 MG PREFILLED SYRINGES ONCE EVERY 4 WEEKS ;ONGOING: YES
     Route: 058
     Dates: start: 20211029
  2. XOLAIR [Suspect]
     Active Substance: OMALIZUMAB
  3. XOLAIR [Suspect]
     Active Substance: OMALIZUMAB
  4. ZYRTEC [Concomitant]
     Active Substance: CETIRIZINE HYDROCHLORIDE
     Indication: Allergy to chemicals
     Route: 048
     Dates: start: 2021
  5. FAMOTIDINE [Concomitant]
     Active Substance: FAMOTIDINE
     Indication: Allergy to chemicals
     Route: 048

REACTIONS (4)
  - Underdose [Unknown]
  - Product complaint [Unknown]
  - Off label use [Unknown]
  - No adverse event [Unknown]

NARRATIVE: CASE EVENT DATE: 20220311
